FAERS Safety Report 12808961 (Version 2)
Quarter: 2016Q4

REPORT INFORMATION
  Report Type: Spontaneous
  Country: FI (occurrence: FI)
  Receive Date: 20161004
  Receipt Date: 20161103
  Transmission Date: 20170207
  Serious: Yes (Disabling)
  Sender: FDA-Public Use
  Company Number: FI-SA-2016SA177919

PATIENT
  Age: 6 Month
  Sex: Male

DRUGS (1)
  1. FLUDARABINE PHOSPHATE. [Suspect]
     Active Substance: FLUDARABINE PHOSPHATE
     Indication: ACUTE MYELOID LEUKAEMIA
     Route: 065
     Dates: start: 2015, end: 2015

REACTIONS (9)
  - Accidental overdose [Unknown]
  - Physical disability [Not Recovered/Not Resolved]
  - Epilepsy [Not Recovered/Not Resolved]
  - Mental disability [Not Recovered/Not Resolved]
  - Blindness [Not Recovered/Not Resolved]
  - Grip strength decreased [Not Recovered/Not Resolved]
  - Brain injury [Not Recovered/Not Resolved]
  - Posture abnormal [Not Recovered/Not Resolved]
  - Deafness [Recovering/Resolving]

NARRATIVE: CASE EVENT DATE: 2015
